FAERS Safety Report 7199321-1 (Version None)
Quarter: 2010Q4

REPORT INFORMATION
  Report Type: 
  Country: None (occurrence: None)
  Receive Date: 20101223
  Receipt Date: 20101223
  Transmission Date: 20110411
  Serious: Yes (Life-Threatening)
  Sender: FDA-Public Use
  Company Number: None

PATIENT
  Age: 54 Year
  Sex: Female
  Weight: 97.5234 kg

DRUGS (2)
  1. FERAHEME [Suspect]
     Indication: ANAEMIA
     Dosage: IV
     Route: 042
     Dates: start: 20101221, end: 20101221
  2. FERAHEME [Suspect]
     Indication: SERUM FERRITIN DECREASED
     Dosage: IV
     Route: 042
     Dates: start: 20101221, end: 20101221

REACTIONS (4)
  - HEADACHE [None]
  - OEDEMA PERIPHERAL [None]
  - PRURITUS [None]
  - RASH PRURITIC [None]
